FAERS Safety Report 8501161-5 (Version None)
Quarter: 2012Q3

REPORT INFORMATION
  Report Type: 
  Country: None (occurrence: None)
  Receive Date: 20120710
  Receipt Date: 20120702
  Transmission Date: 20120928
  Serious: Yes (Death, Life-Threatening, Hospitalization)
  Sender: FDA-Public Use
  Company Number: DE-ACTELION-A-US2008-19869

PATIENT

DRUGS (19)
  1. REVATIO [Concomitant]
  2. FOSRENOL [Concomitant]
  3. ASTONIN-H [Concomitant]
  4. VOLTAREN [Concomitant]
  5. TORSEMIDE [Concomitant]
  6. HYDROCORTISONE [Concomitant]
  7. NOVALGIN [Concomitant]
  8. MARCUMAR [Concomitant]
  9. FLOXAL [Concomitant]
  10. NEXIUM [Concomitant]
  11. EUTHYROX [Concomitant]
  12. PHOS-EX [Concomitant]
  13. RAMIPRIL [Concomitant]
  14. METHYLPREDNISOLONE [Concomitant]
  15. ESCITALOPRAM [Concomitant]
  16. PREDNISOLONE [Concomitant]
  17. CYCLOPHOSPHAMIDE [Concomitant]
  18. TRILEPTAL [Concomitant]
  19. VENTAVIS [Suspect]
     Indication: PULMONARY ARTERIAL HYPERTENSION
     Dosage: 2.5 UG, 6 X DAY
     Route: 055
     Dates: start: 20080201, end: 20080819

REACTIONS (18)
  - GENERAL PHYSICAL HEALTH DETERIORATION [None]
  - ABDOMINAL WALL ABSCESS [None]
  - CARDIAC FAILURE ACUTE [None]
  - PROCEDURAL HYPOTENSION [None]
  - CARDIAC FAILURE [None]
  - THROMBOTIC MICROANGIOPATHY [None]
  - LETHARGY [None]
  - ELECTROLYTE IMBALANCE [None]
  - PSEUDOMEMBRANOUS COLITIS [None]
  - ASCITES [None]
  - DEVICE RELATED SEPSIS [None]
  - CHOLESTASIS [None]
  - RENAL FAILURE CHRONIC [None]
  - OPTIC ISCHAEMIC NEUROPATHY [None]
  - DISTURBANCE IN ATTENTION [None]
  - HYPOTENSION [None]
  - COR PULMONALE [None]
  - ADRENOCORTICAL INSUFFICIENCY ACUTE [None]
